FAERS Safety Report 22905335 (Version 3)
Quarter: 2024Q2

REPORT INFORMATION
  Report Type: Spontaneous
  Country: PA (occurrence: PA)
  Receive Date: 20230905
  Receipt Date: 20240516
  Transmission Date: 20240715
  Serious: Yes (Other)
  Sender: FDA-Public Use
  Company Number: PA-SANDOZ-SDZ2023PA011752

PATIENT
  Sex: Female

DRUGS (4)
  1. FULVESTRANT [Suspect]
     Active Substance: FULVESTRANT
     Indication: Product used for unknown indication
     Dosage: UNK
     Route: 065
  2. FULVESTRANT [Suspect]
     Active Substance: FULVESTRANT
     Indication: Breast cancer
  3. FULVESTRANT [Suspect]
     Active Substance: FULVESTRANT
     Indication: Metastases to bone
  4. KISQALI [Suspect]
     Active Substance: RIBOCICLIB
     Indication: Breast cancer metastatic
     Dosage: 400 MG, QD
     Route: 048
     Dates: start: 202111

REACTIONS (14)
  - Immunodeficiency [Recovering/Resolving]
  - Metastasis [Recovering/Resolving]
  - Neutropenia [Recovering/Resolving]
  - Decreased immune responsiveness [Recovering/Resolving]
  - Spinal column injury [Unknown]
  - Mobility decreased [Unknown]
  - Somnolence [Unknown]
  - Malaise [Unknown]
  - Alopecia [Recovering/Resolving]
  - Fatigue [Unknown]
  - Fracture [Unknown]
  - Skeletal injury [Unknown]
  - Paraesthesia [Unknown]
  - Hypoaesthesia [Unknown]
